FAERS Safety Report 9147502 (Version 1)
Quarter: 2013Q1

REPORT INFORMATION
  Report Type: Spontaneous
  Country: US (occurrence: US)
  Receive Date: 20130307
  Receipt Date: 20130307
  Transmission Date: 20140127
  Serious: Yes (Other)
  Sender: FDA-Public Use
  Company Number: US-TEVA-389639USA

PATIENT
  Sex: Female
  Weight: 103 kg

DRUGS (4)
  1. ESCITALOPRAM [Suspect]
     Indication: DEPRESSION
     Dates: start: 201206, end: 20120711
  2. ESCITALOPRAM [Suspect]
     Indication: DEPRESSION
     Dates: start: 20120529, end: 201206
  3. CLOZARIL [Suspect]
     Indication: HALLUCINATION
     Dosage: 300 MILLIGRAM DAILY;
     Route: 048
     Dates: start: 20120625, end: 20121011
  4. ESKALITH [Concomitant]
     Indication: MOOD SWINGS
     Dates: start: 20120503, end: 201207

REACTIONS (3)
  - Obesity [Not Recovered/Not Resolved]
  - Hypertension [Unknown]
  - Tachycardia [Unknown]
